FAERS Safety Report 7514632-5 (Version None)
Quarter: 2011Q2

REPORT INFORMATION
  Report Type: 
  Country: None (occurrence: None)
  Receive Date: 20110520
  Receipt Date: 20110510
  Transmission Date: 20111010
  Serious: Yes (Other)
  Sender: FDA-Public Use
  Company Number: 2011SP001563

PATIENT
  Sex: Female

DRUGS (1)
  1. LATUDA [Suspect]
     Dosage: 40 MG, ORAL
     Route: 048
     Dates: start: 20110422

REACTIONS (3)
  - ROAD TRAFFIC ACCIDENT [None]
  - LOSS OF CONSCIOUSNESS [None]
  - CHEST PAIN [None]
